FAERS Safety Report 5065971-1 (Version None)
Quarter: 2006Q3

REPORT INFORMATION
  Report Type: 
  Country: None (occurrence: None)
  Receive Date: 20060731
  Receipt Date: 20060418
  Transmission Date: 20061208
  Serious: Yes (Hospitalization)
  Sender: FDA-Public Use
  Company Number: US-BOEHRINGER INGELHEIM PHARMACEUTICALS, INC.-2006-BP-04382BP

PATIENT
  Sex: Female

DRUGS (14)
  1. SPIRIVA [Suspect]
     Indication: CHRONIC OBSTRUCTIVE PULMONARY DISEASE
     Route: 055
     Dates: start: 20060301
  2. SPIRIVA [Suspect]
     Route: 055
     Dates: start: 20060101
  3. SPIRIVA [Suspect]
     Route: 055
     Dates: start: 20050901
  4. ALBUTEROL SPIROS [Suspect]
     Indication: CHRONIC OBSTRUCTIVE PULMONARY DISEASE
     Route: 055
     Dates: start: 20030101
  5. GENTEAL [Concomitant]
  6. OCCUSOFT [Concomitant]
     Route: 061
  7. DIGOXIN [Concomitant]
     Route: 048
  8. VERAPAMIL [Concomitant]
     Route: 048
  9. VERELAN PM [Concomitant]
  10. LANOXIN [Concomitant]
  11. XANAX [Concomitant]
  12. FLOVENT HFA [Concomitant]
  13. ATROVENT HFA [Concomitant]
     Dates: start: 19960101
  14. OXYGEN [Concomitant]

REACTIONS (8)
  - CHRONIC OBSTRUCTIVE PULMONARY DISEASE [None]
  - DIPLOPIA [None]
  - DRY EYE [None]
  - DYSPHONIA [None]
  - ERYTHEMA OF EYELID [None]
  - EYE PAIN [None]
  - RESPIRATORY TRACT INFECTION [None]
  - VISION BLURRED [None]
